FAERS Safety Report 9553979 (Version 1)
Quarter: 2013Q3

REPORT INFORMATION
  Report Type: Report from Study
  Country: US (occurrence: US)
  Receive Date: 20130925
  Receipt Date: 20130925
  Transmission Date: 20140515
  Serious: Yes (Other)
  Sender: FDA-Public Use
  Company Number: US-ABBVIE-13P-163-1148365-00

PATIENT
  Age: 57 Year
  Sex: Female

DRUGS (10)
  1. HUMIRA [Suspect]
     Indication: RHEUMATOID ARTHRITIS
     Dosage: MELANOMA SURGERY WAS 3-4 YRS AGO
     Dates: start: 200805
  2. HUMIRA [Suspect]
  3. HUMIRA [Suspect]
     Dates: end: 20130730
  4. CELEBREX [Concomitant]
     Indication: RHEUMATOID ARTHRITIS
  5. PROTONIX [Concomitant]
     Indication: GASTROOESOPHAGEAL REFLUX DISEASE
  6. LORTAB [Concomitant]
     Indication: PAIN
     Dosage: Q4-6H
  7. CARAFATE [Concomitant]
     Indication: GASTRIC DISORDER
     Dosage: 1 GRAM QD PRN
  8. VITAMIN C [Concomitant]
     Indication: PRODUCT USED FOR UNKNOWN INDICATION
  9. COUMADIN [Concomitant]
     Indication: PRODUCT USED FOR UNKNOWN INDICATION
  10. VITAMIN D [Concomitant]
     Indication: VITAMIN D DEFICIENCY

REACTIONS (5)
  - Osteoarthritis [Unknown]
  - Malignant melanoma [Not Recovered/Not Resolved]
  - Drug effect decreased [Not Recovered/Not Resolved]
  - Vitamin D deficiency [Not Recovered/Not Resolved]
  - Musculoskeletal stiffness [Not Recovered/Not Resolved]
